FAERS Safety Report 9174921 (Version 2)
Quarter: 2013Q4

REPORT INFORMATION
  Report Type: Spontaneous
  Country: US (occurrence: US)
  Receive Date: 20130320
  Receipt Date: 20131223
  Transmission Date: 20140711
  Serious: Yes (Other)
  Sender: FDA-Public Use
  Company Number: US-BAYER-2013-033315

PATIENT
  Age: 21 Year
  Sex: Female
  Weight: 117.91 kg

DRUGS (9)
  1. YAZ [Suspect]
  2. YASMIN [Suspect]
  3. OCELLA [Suspect]
  4. TORADOL [Concomitant]
     Dosage: 10 MG, UNK
     Route: 048
  5. FLEXERIL [Concomitant]
     Dosage: 10 MG, UNK
     Route: 048
  6. NAPROSYN [Concomitant]
     Dosage: UNK
     Route: 048
  7. RANITIDINE [Concomitant]
     Dosage: 150 MG TWICE PER DAY
     Route: 048
  8. WELLBUTRIN [Concomitant]
     Indication: DEPRESSION
     Dosage: ONE, TWICE A DAY
     Route: 048
  9. ZANTAC [Concomitant]
     Indication: DYSPEPSIA
     Dosage: 2 A DAY
     Route: 048

REACTIONS (4)
  - Cholecystectomy [None]
  - Cholecystitis chronic [None]
  - Injury [None]
  - Emotional distress [None]
